FAERS Safety Report 9862276 (Version 1)
Quarter: 2014Q1

REPORT INFORMATION
  Report Type: Spontaneous
  Country: US (occurrence: US)
  Receive Date: 20140203
  Receipt Date: 20140203
  Transmission Date: 20141002
  Serious: Yes (Other)
  Sender: FDA-Public Use
  Company Number: US-BAYER-2014-016870

PATIENT
  Age: 14 Year
  Sex: Female
  Weight: 82.09 kg

DRUGS (8)
  1. YASMIN [Suspect]
  2. OCELLA [Suspect]
  3. ELAVIL [Concomitant]
     Dosage: 10 MG, 1 HS
     Route: 048
  4. BENTYL [Concomitant]
     Dosage: 20 MG, 1 TID
     Route: 048
  5. NEURONTIN [Concomitant]
     Dosage: 100 MG, 1 TID
     Route: 048
  6. ULTRAM [Concomitant]
     Dosage: 50 MG, 1 EVERY 8 HOURS
     Route: 048
  7. GLUCOPHAGE [Concomitant]
     Dosage: 500 MG, BID
  8. PRILOSEC [Concomitant]
     Dosage: 40 MG, TAKE 1 ONCE DAILY FOR 30 DAYS
     Route: 048

REACTIONS (1)
  - Biliary dyskinesia [None]
